FAERS Safety Report 11169908 (Version 4)
Quarter: 2015Q3

REPORT INFORMATION
  Report Type: Spontaneous
  Country: US (occurrence: US)
  Receive Date: 20150607
  Receipt Date: 20150810
  Transmission Date: 20151125
  Serious: Yes (Hospitalization, Disabling, Other)
  Sender: FDA-Public Use
  Company Number: US-009507513-1506USA001410

PATIENT
  Age: 44 Year
  Sex: Female
  Weight: 46.3 kg

DRUGS (1)
  1. KEYTRUDA [Suspect]
     Active Substance: PEMBROLIZUMAB
     Indication: METASTATIC MALIGNANT MELANOMA
     Dosage: 2 MG/KG (125 MG)
     Route: 042
     Dates: start: 20141217, end: 20150513

REACTIONS (22)
  - Gait disturbance [Recovered/Resolved]
  - Dysphagia [Recovered/Resolved]
  - Oedema peripheral [Unknown]
  - Failure to thrive [Unknown]
  - Anaemia [Unknown]
  - Weight decreased [Unknown]
  - Rheumatoid arthritis [Recovering/Resolving]
  - Nausea [Recovered/Resolved]
  - Hypophosphataemia [Recovered/Resolved]
  - Psoriasis [Unknown]
  - Lymphocytosis [Unknown]
  - Arthralgia [Recovering/Resolving]
  - Hypokalaemia [Recovered/Resolved]
  - Lymphadenopathy [Unknown]
  - Metastatic malignant melanoma [Not Recovered/Not Resolved]
  - Vomiting [Recovered/Resolved]
  - Asthenia [Recovering/Resolving]
  - Chronic gastritis [Not Recovered/Not Resolved]
  - Dehydration [Unknown]
  - Decreased appetite [Unknown]
  - Hypothyroidism [Unknown]
  - Muscular weakness [Unknown]

NARRATIVE: CASE EVENT DATE: 2015
